FAERS Safety Report 8490779-4 (Version None)
Quarter: 2012Q3

REPORT INFORMATION
  Report Type: 
  Country: None (occurrence: None)
  Receive Date: 20120706
  Receipt Date: 20120627
  Transmission Date: 20120928
  Serious: Yes (Hospitalization)
  Sender: FDA-Public Use
  Company Number: BR-BIOGENIDEC-2012BI004998

PATIENT
  Age: 39 Year
  Sex: Female
  Weight: 78 kg

DRUGS (3)
  1. ANTIBIOTIC (NOS) [Concomitant]
     Indication: RENAL STONE REMOVAL
     Dates: start: 20120401, end: 20120401
  2. ANTI-INFLAMMATORY (NOS) [Concomitant]
     Indication: RENAL STONE REMOVAL
     Dates: start: 20120401, end: 20120401
  3. AVONEX [Suspect]
     Indication: MULTIPLE SCLEROSIS
     Route: 030
     Dates: start: 20120203

REACTIONS (5)
  - RENAL STONE REMOVAL [None]
  - HEADACHE [None]
  - PYREXIA [None]
  - PROCEDURAL PAIN [None]
  - VOMITING [None]
